FAERS Safety Report 20547657 (Version 1)
Quarter: 2022Q1

REPORT INFORMATION
  Report Type: Spontaneous
  Country: US (occurrence: None)
  Receive Date: 20220303
  Receipt Date: 20220303
  Transmission Date: 20220423
  Serious: No
  Sender: FDA-Public Use
  Company Number: None

PATIENT
  Age: 74 Year
  Sex: Male

DRUGS (1)
  1. HUMIRA [Suspect]
     Active Substance: ADALIMUMAB
     Dosage: OTHER FREQUENCY : N/A;?
     Route: 058

REACTIONS (3)
  - Therapy interrupted [None]
  - Device malfunction [None]
  - Device leakage [None]

NARRATIVE: CASE EVENT DATE: 20220303
